FAERS Safety Report 9729767 (Version 2)
Quarter: 2015Q3

REPORT INFORMATION
  Report Type: Spontaneous
  Country: US (occurrence: US)
  Receive Date: 20131204
  Receipt Date: 20150804
  Transmission Date: 20151125
  Serious: No
  Sender: FDA-Public Use
  Company Number: US-GILEAD-2009-0022326

PATIENT
  Age: 71 Year
  Sex: Female
  Weight: 50.8 kg

DRUGS (13)
  1. FUROSEMIDE. [Concomitant]
     Active Substance: FUROSEMIDE
  2. PREDNISONE. [Concomitant]
     Active Substance: PREDNISONE
  3. ZYRTEC [Concomitant]
     Active Substance: CETIRIZINE HYDROCHLORIDE
  4. VITAMIN D [Concomitant]
     Active Substance: CHOLECALCIFEROL
  5. IMURAN [Concomitant]
     Active Substance: AZATHIOPRINE
  6. VENTAVIS [Concomitant]
     Active Substance: ILOPROST
  7. ESTRACE [Concomitant]
     Active Substance: ESTRADIOL
  8. CALCIUM [Concomitant]
     Active Substance: CALCIUM
  9. ACTONEL [Concomitant]
     Active Substance: RISEDRONATE SODIUM
  10. PREVACID [Concomitant]
     Active Substance: LANSOPRAZOLE
  11. LETAIRIS [Suspect]
     Active Substance: AMBRISENTAN
     Indication: PULMONARY ARTERIAL HYPERTENSION
     Route: 048
     Dates: start: 20090313
  12. POTASSIUM CHLORIDE. [Concomitant]
     Active Substance: POTASSIUM CHLORIDE
  13. COUMADIN [Concomitant]
     Active Substance: WARFARIN SODIUM

REACTIONS (1)
  - Unevaluable event [Unknown]
